FAERS Safety Report 9134941 (Version 1)
Quarter: 2013Q1

REPORT INFORMATION
  Report Type: Spontaneous
  Country: US (occurrence: US)
  Receive Date: 20130304
  Receipt Date: 20130304
  Transmission Date: 20140127
  Serious: No
  Sender: FDA-Public Use
  Company Number: US-ENDO PHARMACEUTICALS INC.-ENDC20100028

PATIENT
  Age: 29 Year
  Sex: Female

DRUGS (1)
  1. ENDOCET [Suspect]
     Indication: PAIN
     Dosage: 5/325 MG
     Route: 048
     Dates: start: 20101202, end: 20101203

REACTIONS (4)
  - Nightmare [Recovered/Resolved]
  - Nausea [Recovered/Resolved]
  - Dizziness [Recovered/Resolved]
  - Dyspnoea [Recovered/Resolved]
